FAERS Safety Report 9859311 (Version 1)
Quarter: 2014Q1

REPORT INFORMATION
  Report Type: Spontaneous
  Country: US (occurrence: US)
  Receive Date: 20140131
  Receipt Date: 20140131
  Transmission Date: 20141002
  Serious: No
  Sender: FDA-Public Use
  Company Number: US-PFIZER INC-2014027822

PATIENT
  Sex: Male

DRUGS (2)
  1. LYRICA [Suspect]
     Dosage: 300 MG, UNK
  2. LYRICA [Suspect]
     Dosage: 50 MG, UNK
     Dates: end: 20140128

REACTIONS (2)
  - Malaise [Unknown]
  - Irritability [Unknown]
